FAERS Safety Report 8523013-7 (Version None)
Quarter: 2012Q3

REPORT INFORMATION
  Report Type: 
  Country: None (occurrence: None)
  Receive Date: 20120720
  Receipt Date: 20120717
  Transmission Date: 20120928
  Serious: Yes (Hospitalization)
  Sender: FDA-Public Use
  Company Number: US-AMGEN-USASP2012044456

PATIENT
  Age: 64 Year
  Sex: Female

DRUGS (1)
  1. ENBREL [Suspect]
     Indication: PSORIATIC ARTHROPATHY
     Dosage: 25 MG, 2 TIMES/WK
     Dates: start: 20010101

REACTIONS (18)
  - TOE AMPUTATION [None]
  - PAIN [None]
  - WALKING AID USER [None]
  - ORAL DISORDER [None]
  - ORAL MUCOSAL BLISTERING [None]
  - INJECTION SITE PAIN [None]
  - PNEUMONIA [None]
  - ARTHRALGIA [None]
  - JOINT SWELLING [None]
  - PAIN IN EXTREMITY [None]
  - MOBILITY DECREASED [None]
  - OEDEMA PERIPHERAL [None]
  - VASCULAR GRAFT [None]
  - ORAL PAIN [None]
  - STAPHYLOCOCCAL INFECTION [None]
  - ALOPECIA [None]
  - BACK PAIN [None]
  - INJECTION SITE DISCOMFORT [None]
